FAERS Safety Report 7407221-4 (Version None)
Quarter: 2011Q2

REPORT INFORMATION
  Report Type: 
  Country: None (occurrence: None)
  Receive Date: 20110411
  Receipt Date: 20110328
  Transmission Date: 20111010
  Serious: Yes (Hospitalization, Other)
  Sender: FDA-Public Use
  Company Number: PHHY2011FR26313

PATIENT
  Sex: Female

DRUGS (3)
  1. GLEEVEC [Suspect]
     Indication: GASTROINTESTINAL STROMAL TUMOUR
     Dosage: 400 MG, BID
     Route: 048
     Dates: start: 20090601, end: 20110201
  2. AMLODIPINE BESYLATE [Concomitant]
     Dosage: 5 MG, QD
     Route: 048
  3. ESOMEPRAZOLE [Concomitant]
     Dosage: 20 MG, QD
     Route: 048

REACTIONS (14)
  - PLEURAL EFFUSION [None]
  - PROTEINURIA [None]
  - HAEMOGLOBIN DECREASED [None]
  - GLOMERULAR FILTRATION RATE DECREASED [None]
  - ECHOCARDIOGRAM ABNORMAL [None]
  - RENAL FUNCTION TEST ABNORMAL [None]
  - CREATININE RENAL CLEARANCE INCREASED [None]
  - LEFT VENTRICULAR HYPERTROPHY [None]
  - ANAEMIA [None]
  - RENAL FAILURE [None]
  - NEPHROPATHY [None]
  - OEDEMA PERIPHERAL [None]
  - KIDNEY FIBROSIS [None]
  - HYPERTENSION [None]
